FAERS Safety Report 23454479 (Version 3)
Quarter: 2024Q1

REPORT INFORMATION
  Report Type: Report from Study
  Country: US (occurrence: US)
  Receive Date: 20240130
  Receipt Date: 20240212
  Transmission Date: 20240409
  Serious: Yes (Hospitalization)
  Sender: FDA-Public Use
  Company Number: US-ABBVIE-5604010

PATIENT
  Sex: Male
  Weight: 120.2 kg

DRUGS (11)
  1. HUMIRA [Suspect]
     Active Substance: ADALIMUMAB
     Indication: Rheumatoid arthritis
     Dosage: CITRATE FREE?FORM STRENGTH: 40 MILLIGRAM
     Route: 058
     Dates: start: 20230621
  2. YUPELRI [Concomitant]
     Active Substance: REVEFENACIN
     Indication: Chronic obstructive pulmonary disease
  3. FOLIC ACID [Concomitant]
     Active Substance: FOLIC ACID
     Indication: Rheumatoid arthritis
  4. BUDESONIDE [Concomitant]
     Active Substance: BUDESONIDE
     Indication: Chronic obstructive pulmonary disease
     Dosage: 2 PER DAY
  5. AMLODIPINE [Concomitant]
     Active Substance: AMLODIPINE BESYLATE
     Indication: Hypertension
     Dosage: 5 MILLIGRAM
  6. BROVANA [Concomitant]
     Active Substance: ARFORMOTEROL TARTRATE
     Indication: Chronic obstructive pulmonary disease
  7. METHOTREXATE [Concomitant]
     Active Substance: METHOTREXATE
     Indication: Rheumatoid arthritis
     Dosage: 2.5 MILLIGRAM?FREQUENCY TEXT: 4 PER WEEK
  8. LOSARTAN [Concomitant]
     Active Substance: LOSARTAN
     Indication: Blood pressure measurement
  9. ASPIRIN [Concomitant]
     Active Substance: ASPIRIN
     Indication: Anticoagulant therapy
     Dosage: 81 MILLIGRAM
  10. ATORVASTATIN [Concomitant]
     Active Substance: ATORVASTATIN
     Indication: Blood cholesterol
     Dosage: 40 MILLIGRAM
  11. LEVEMIR [Concomitant]
     Active Substance: INSULIN DETEMIR
     Indication: Diabetes mellitus
     Dosage: 5 UNITS?INJECTION

REACTIONS (1)
  - Aortic aneurysm [Recovered/Resolved]
